FAERS Safety Report 9215635 (Version 1)
Quarter: 2013Q2

REPORT INFORMATION
  Report Type: Spontaneous
  Country: US (occurrence: US)
  Receive Date: 20130408
  Receipt Date: 20130408
  Transmission Date: 20140414
  Serious: Yes (Hospitalization)
  Sender: FDA-Public Use
  Company Number: US-PFIZER INC-2013104352

PATIENT
  Age: 19 Year
  Sex: Male

DRUGS (2)
  1. DILANTIN [Suspect]
     Indication: EPILEPSY
     Dosage: 3 CAPSULES (0.098 G) EACH PER DAY
     Dates: start: 19400328
  2. DILANTIN [Suspect]
     Dosage: 3.705 G OVER A PERIOD OF THREE HOURS
     Dates: start: 19400718, end: 19400718

REACTIONS (2)
  - Overdose [Unknown]
  - Toxicity to various agents [Unknown]
